FAERS Safety Report 16979415 (Version 1)
Quarter: 2019Q4

REPORT INFORMATION
  Report Type: Spontaneous
  Country: US (occurrence: US)
  Receive Date: 20191031
  Receipt Date: 20191031
  Transmission Date: 20200122
  Serious: Yes (Hospitalization)
  Sender: FDA-Public Use
  Company Number: US-AMNEAL PHARMACEUTICALS-2019-AMRX-02372

PATIENT
  Age: 46 Year
  Sex: Female
  Weight: 100 kg

DRUGS (6)
  1. MOTRIN [Concomitant]
     Active Substance: IBUPROFEN
     Indication: PELVIC PAIN
     Dosage: 200 MILLIGRAM, AS REQUIRED
     Route: 048
     Dates: start: 20170501
  2. FERROUS GLUCONATE [Concomitant]
     Active Substance: FERROUS GLUCONATE
     Indication: ANAEMIA
     Dosage: 240 MILLIGRAM, DAILY
     Route: 048
     Dates: start: 20171003, end: 20180130
  3. ELAGOLIX [Suspect]
     Active Substance: ELAGOLIX
     Indication: UTERINE LEIOMYOMA
     Dosage: 300 MG, 2 DOSAGE FORM, DAILY
     Route: 048
     Dates: start: 20170713, end: 20171228
  4. ACTIVELLA [Suspect]
     Active Substance: ESTRADIOL\NORETHINDRONE ACETATE
     Indication: UTERINE LEIOMYOMA
     Dosage: 1 TABLETS, DAILY
     Route: 048
     Dates: start: 20170713, end: 20171228
  5. CENTRUM FOR WOMEN [Concomitant]
     Active Substance: VITAMINS
     Indication: GENERAL PHYSICAL CONDITION
     Dosage: 1 TABLETS, DAILY
     Route: 048
     Dates: start: 20140101
  6. FERROUS GLUCONATE [Concomitant]
     Active Substance: FERROUS GLUCONATE
     Dosage: 240 DOSAGE FORM, DAILY
     Route: 048
     Dates: start: 20180707

REACTIONS (1)
  - Anxiety [Recovered/Resolved]

NARRATIVE: CASE EVENT DATE: 20180110
